FAERS Safety Report 4683479-X (Version None)
Quarter: 2005Q2

REPORT INFORMATION
  Report Type: 
  Country: None (occurrence: None)
  Receive Date: 20050602
  Receipt Date: 20050408
  Transmission Date: 20051028
  Serious: No
  Sender: FDA-Public Use
  Company Number: 200510738BWH

PATIENT
  Age: 66 Year
  Sex: Male

DRUGS (6)
  1. LEVITRA [Suspect]
     Indication: ERECTILE DYSFUNCTION
     Dosage: 5 MG, TOTAL DAILY, ORAL
     Route: 048
     Dates: start: 20050408
  2. ATENOLOL [Concomitant]
  3. ARGININE [Concomitant]
  4. ASPIRIN [Concomitant]
  5. TAURINE [Concomitant]
  6. VIAGRA [Concomitant]

REACTIONS (4)
  - ERECTILE DYSFUNCTION [None]
  - ERYTHEMA [None]
  - FLUSHING [None]
  - HEADACHE [None]
